FAERS Safety Report 24009725 (Version 1)
Quarter: 2024Q2

REPORT INFORMATION
  Report Type: Report from Study
  Country: RO (occurrence: RO)
  Receive Date: 20240625
  Receipt Date: 20240625
  Transmission Date: 20240716
  Serious: Yes (Hospitalization)
  Sender: FDA-Public Use
  Company Number: RO-BoehringerIngelheim-2024-BI-034398

PATIENT
  Age: 57 Year
  Sex: Male

DRUGS (6)
  1. EMPAGLIFLOZIN [Suspect]
     Active Substance: EMPAGLIFLOZIN
     Indication: Type 2 diabetes mellitus
     Dates: start: 202011, end: 2023
  2. Digoxin0.25 mg [Concomitant]
     Indication: Cardiac failure chronic
  3. Spironolactone50 mg [Concomitant]
     Indication: Cardiac failure chronic
  4. Apixaban5 mg [Concomitant]
     Indication: Cardiac failure chronic
  5. Synjardy5/1000 mg [Concomitant]
     Indication: Type 2 diabetes mellitus
     Dates: start: 2023
  6. Semaglutide14 mg [Concomitant]
     Indication: Type 2 diabetes mellitus
     Dates: start: 2023

REACTIONS (1)
  - COVID-19 [Recovered/Resolved]
